FAERS Safety Report 7301224-6 (Version None)
Quarter: 2011Q1

REPORT INFORMATION
  Report Type: 
  Country: None (occurrence: None)
  Receive Date: 20110218
  Receipt Date: 20110208
  Transmission Date: 20110831
  Serious: Yes (Hospitalization)
  Sender: FDA-Public Use
  Company Number: JP-ELI_LILLY_AND_COMPANY-JP201102002539

PATIENT
  Sex: Female

DRUGS (2)
  1. FORTEO [Suspect]
     Route: 058
     Dates: start: 20110112
  2. FORTEO [Suspect]
     Dosage: UNK, UNK
     Route: 058
     Dates: end: 20101227

REACTIONS (1)
  - SEPSIS [None]
